FAERS Safety Report 5332909-9 (Version None)
Quarter: 2007Q2

REPORT INFORMATION
  Report Type: 
  Country: None (occurrence: None)
  Receive Date: 20070521
  Receipt Date: 20070510
  Transmission Date: 20071010
  Serious: Yes (Death)
  Sender: FDA-Public Use
  Company Number: 2007-01385

PATIENT
  Age: 85 Year
  Sex: Male

DRUGS (1)
  1. VELCADE [Suspect]
     Indication: MULTIPLE MYELOMA
     Dosage: 1.00 MG/M2, INTRAVENOUS
     Route: 042
     Dates: start: 20070502, end: 20070509

REACTIONS (1)
  - DEATH [None]
